FAERS Safety Report 5377125-X (Version None)
Quarter: 2007Q2

REPORT INFORMATION
  Report Type: 
  Country: None (occurrence: None)
  Receive Date: 20070629
  Receipt Date: 20070629
  Transmission Date: 20071010
  Serious: Yes (Congenital Anomaly, Other)
  Sender: FDA-Public Use
  Company Number: None

PATIENT
  Age: 45 Year
  Sex: Female
  Weight: 77.1115 kg

DRUGS (2)
  1. CARBAMAZEPINE [Suspect]
     Indication: EPILEPSY
     Dosage: 200 5X PO
     Route: 048
     Dates: start: 19850124, end: 20070628
  2. PHENOBARBITAL NEMBUTAL/64.8 [Suspect]
     Indication: EPILEPSY
     Dosage: 64.8 4X PO
     Route: 048
     Dates: start: 19850123, end: 20070628

REACTIONS (6)
  - ANHEDONIA [None]
  - COGNITIVE DISORDER [None]
  - IMMUNE SYSTEM DISORDER [None]
  - MEMORY IMPAIRMENT [None]
  - MOOD ALTERED [None]
  - NEUROTOXICITY [None]
